FAERS Safety Report 6151784-6 (Version None)
Quarter: 2009Q2

REPORT INFORMATION
  Report Type: 
  Country: None (occurrence: None)
  Receive Date: 20090410
  Receipt Date: 20090330
  Transmission Date: 20091009
  Serious: Yes (Hospitalization, Other)
  Sender: FDA-Public Use
  Company Number: FR-ELI_LILLY_AND_COMPANY-FR200903007379

PATIENT
  Sex: Male

DRUGS (10)
  1. GEMZAR [Suspect]
     Indication: RECTOSIGMOID CANCER
     Dosage: 1800 MG, UNKNOWN
     Route: 065
     Dates: start: 20081216, end: 20081216
  2. GEMZAR [Suspect]
     Dosage: 1500 MG, UNKNOWN
     Route: 065
     Dates: start: 20081230
  3. ELOXATIN [Concomitant]
     Indication: RECTOSIGMOID CANCER
     Dosage: 180 MG, UNKNOWN
     Route: 065
     Dates: start: 20081216, end: 20081216
  4. ELOXATIN [Concomitant]
     Dosage: 150 MG, UNKNOWN
     Route: 065
     Dates: start: 20081230
  5. ONDANSETRON HCL [Concomitant]
     Indication: PREMEDICATION
     Dosage: UNK, UNKNOWN
     Route: 065
     Dates: start: 20080101
  6. SOLU-MEDROL [Concomitant]
     Indication: PREMEDICATION
     Dosage: 80 MG, UNKNOWN
     Route: 065
     Dates: start: 20080101
  7. XATRAL /00975301/ [Concomitant]
     Dosage: UNK, UNKNOWN
     Route: 065
  8. LASIX [Concomitant]
     Dosage: UNK, UNKNOWN
     Route: 065
  9. MODURETIC 5-50 [Concomitant]
     Dosage: UNK, UNKNOWN
     Route: 065
  10. FERROUS SULFATE TAB [Concomitant]
     Dosage: UNK, UNKNOWN
     Route: 065

REACTIONS (8)
  - ANAEMIA [None]
  - COUGH [None]
  - EPISTAXIS [None]
  - ERYTHEMA [None]
  - HAEMORRHAGE [None]
  - HOT FLUSH [None]
  - PYREXIA [None]
  - THROMBOCYTOPENIA [None]
